FAERS Safety Report 5032415-5 (Version None)
Quarter: 2006Q2

REPORT INFORMATION
  Report Type: 
  Country: None (occurrence: None)
  Receive Date: 20060620
  Receipt Date: 20060605
  Transmission Date: 20061013
  Serious: Yes (Death)
  Sender: FDA-Public Use
  Company Number: T200600624

PATIENT
  Age: 39 Year
  Sex: Female

DRUGS (1)
  1. METHADOSE [Suspect]
     Indication: BACK PAIN
     Dates: start: 20010601

REACTIONS (3)
  - ACCIDENTAL OVERDOSE [None]
  - CARDIO-RESPIRATORY ARREST [None]
  - DRUG INTERACTION [None]
